FAERS Safety Report 4498351-8 (Version None)
Quarter: 2004Q4

REPORT INFORMATION
  Report Type: 
  Country: None (occurrence: None)
  Receive Date: 20041104
  Receipt Date: 20041022
  Transmission Date: 20050328
  Serious: Yes (Life-Threatening, Hospitalization)
  Sender: FDA-Public Use
  Company Number: 2004-DE-05623BY

PATIENT
  Age: 51 Year

DRUGS (1)
  1. KINZALMONO (TELMISARTAN) (TELMISARTAN) [Suspect]
     Indication: HYPERTENSION

REACTIONS (2)
  - DRUG EFFECT DECREASED [None]
  - HYPERTENSIVE CRISIS [None]
